FAERS Safety Report 10659743 (Version 1)
Quarter: 2014Q4

REPORT INFORMATION
  Report Type: Spontaneous
  Country: GB (occurrence: GB)
  Receive Date: 20141217
  Receipt Date: 20141217
  Transmission Date: 20150529
  Serious: Yes (Other)
  Sender: FDA-Public Use
  Company Number: GB-PFIZER INC-2014344708

PATIENT
  Age: 73 Year
  Sex: Female

DRUGS (2)
  1. LYRICA [Suspect]
     Active Substance: PREGABALIN
     Indication: NEURALGIA
     Dosage: 300 MG (2 X 150 MG)
  2. LYRICA [Suspect]
     Active Substance: PREGABALIN
     Dosage: 600 MG (2 X 300 MG)

REACTIONS (4)
  - Drug ineffective [Unknown]
  - Dizziness [Unknown]
  - Mental impairment [Unknown]
  - Pain [Unknown]
